FAERS Safety Report 4302769-3 (Version None)
Quarter: 2004Q1

REPORT INFORMATION
  Report Type: 
  Country: None (occurrence: None)
  Receive Date: 20040224
  Receipt Date: 20031006
  Transmission Date: 20041129
  Serious: No
  Sender: FDA-Public Use
  Company Number: US-BRISTOL-MYERS SQUIBB COMPANY-12403440

PATIENT
  Sex: Female

DRUGS (1)
  1. KENALOG [Suspect]
     Dates: start: 20030401

REACTIONS (1)
  - INJECTION SITE NECROSIS [None]
